FAERS Safety Report 8389813-1 (Version None)
Quarter: 2012Q2

REPORT INFORMATION
  Report Type: 
  Country: None (occurrence: None)
  Receive Date: 20120529
  Receipt Date: 20120524
  Transmission Date: 20120825
  Serious: Yes (Other)
  Sender: FDA-Public Use
  Company Number: PHHY2012CL040016

PATIENT
  Age: 75 Year
  Sex: Female

DRUGS (4)
  1. PROLOPA [Concomitant]
  2. ASPIRIN [Concomitant]
     Dosage: 100 MG, UNK
  3. ZOLEDRONOC ACID [Suspect]
     Indication: OSTEOPOROSIS
     Dosage: 5 MG, YEARLY
     Route: 042
  4. NIFEDIPINE [Concomitant]

REACTIONS (4)
  - BACK PAIN [None]
  - DEPRESSION [None]
  - MYALGIA [None]
  - FALL [None]
